FAERS Safety Report 6269308-1 (Version None)
Quarter: 2009Q3

REPORT INFORMATION
  Report Type: 
  Country: None (occurrence: None)
  Receive Date: 20090715
  Receipt Date: 20090715
  Transmission Date: 20100115
  Serious: Yes (Death)
  Sender: FDA-Public Use
  Company Number: IN-EISAI INC.-E2020-04875-CLI-IN

PATIENT
  Sex: Male
  Weight: 61.5 kg

DRUGS (4)
  1. E2020-SR [Suspect]
     Route: 048
     Dates: start: 20081223, end: 20090625
  2. CLOPIDOGREL [Concomitant]
     Route: 048
     Dates: start: 20080517, end: 20090625
  3. ADMENTA [Concomitant]
     Route: 048
     Dates: start: 20080101, end: 20090625
  4. REMISTAR [Concomitant]
     Indication: HYPERTENSION
     Route: 048
     Dates: start: 20090517, end: 20090625

REACTIONS (1)
  - HAEMATEMESIS [None]
